FAERS Safety Report 10419809 (Version 4)
Quarter: 2015Q1

REPORT INFORMATION
  Report Type: Spontaneous
  Country: US (occurrence: US)
  Receive Date: 20140829
  Receipt Date: 20150213
  Transmission Date: 20150720
  Serious: Yes (Hospitalization)
  Sender: FDA-Public Use
  Company Number: US-PFIZER INC-2014237782

PATIENT
  Age: 80 Year
  Sex: Female

DRUGS (1)
  1. REVATIO [Suspect]
     Active Substance: SILDENAFIL CITRATE
     Dosage: UNK

REACTIONS (7)
  - Cardiac disorder [Unknown]
  - Peripheral swelling [Unknown]
  - Gingival disorder [Unknown]
  - Skin discolouration [Unknown]
  - Laceration [Unknown]
  - Skin exfoliation [Unknown]
  - Impaired healing [Unknown]

NARRATIVE: CASE EVENT DATE: 201405
